FAERS Safety Report 4971322-0 (Version None)
Quarter: 2006Q2

REPORT INFORMATION
  Report Type: 
  Country: None (occurrence: None)
  Receive Date: 20060406
  Receipt Date: 20060315
  Transmission Date: 20061013
  Serious: Yes (Hospitalization)
  Sender: FDA-Public Use
  Company Number: WAES 0603SGP00009

PATIENT
  Age: 69 Year
  Sex: Female

DRUGS (8)
  1. VYTORIN [Suspect]
     Indication: HYPERLIPIDAEMIA
     Dosage: 10-10 MG/PM
     Route: 048
     Dates: start: 20060210, end: 20060214
  2. DILTIAZEM HYDROCHLORIDE [Suspect]
     Indication: HYPERTENSION
     Dosage: 90 MG/AM
     Route: 048
     Dates: start: 20060210, end: 20060215
  3. ASPIRIN [Concomitant]
  4. CLOPIDOGREL BISULFATE [Concomitant]
  5. FUROSEMIDE [Concomitant]
  6. INJ BLINDED THERAPY [Suspect]
     Indication: ACUTE CORONARY SYNDROME
     Dosage: 4.5 ML; 4.5; 8
     Route: 042
     Dates: start: 20060209, end: 20060209
  7. INJ BLINDED THERAPY [Suspect]
     Indication: ACUTE CORONARY SYNDROME
     Dosage: 4.5 ML; 4.5; 8
     Route: 042
     Dates: start: 20060209, end: 20060209
  8. INJ BLINDED THERAPY [Suspect]
     Indication: ACUTE CORONARY SYNDROME
     Dosage: 4.5 ML; 4.5; 8
     Route: 042
     Dates: start: 20060209, end: 20060211

REACTIONS (2)
  - VERTIGO [None]
  - VESTIBULAR NEURONITIS [None]
